FAERS Safety Report 22325931 (Version 2)
Quarter: 2023Q2

REPORT INFORMATION
  Report Type: Report from Study
  Country: BR (occurrence: BR)
  Receive Date: 20230516
  Receipt Date: 20230523
  Transmission Date: 20230722
  Serious: Yes (Hospitalization, Other)
  Sender: FDA-Public Use
  Company Number: BR-AKCEA THERAPEUTICS, INC.-2022IS004456

PATIENT

DRUGS (8)
  1. TEGSEDI [Suspect]
     Active Substance: INOTERSEN SODIUM
     Indication: Hereditary neuropathic amyloidosis
     Dosage: UNK UNK, HALF A DOSE OF THE SYRINGE TWICE A WEEK
     Route: 058
     Dates: start: 201511, end: 20221227
  2. TEGSEDI [Suspect]
     Active Substance: INOTERSEN SODIUM
     Dosage: UNK, BID, HALD A DOSE OF THE SYRINGE
     Route: 058
     Dates: start: 2022, end: 2022
  3. TEGSEDI [Suspect]
     Active Substance: INOTERSEN SODIUM
     Dosage: UNK, BID, HALD A DOSE OF THE SYRINGE
     Route: 058
     Dates: start: 2022, end: 20230309
  4. TEGSEDI [Suspect]
     Active Substance: INOTERSEN SODIUM
     Dosage: UNK
     Route: 065
  5. TEGSEDI [Suspect]
     Active Substance: INOTERSEN SODIUM
     Dosage: UNK, HALF A DOSE OF THE SYRINGE OF 1,5ML BID
     Route: 058
     Dates: end: 2023
  6. TEGSEDI [Suspect]
     Active Substance: INOTERSEN SODIUM
     Dosage: UNK, HALF A DOSE OF THE SYRINGE OF 1,5ML BID
     Route: 058
     Dates: start: 202303, end: 20230330
  7. TEGSEDI [Suspect]
     Active Substance: INOTERSEN SODIUM
     Dosage: UNK
     Route: 065
  8. CARVEDILOL [Concomitant]
     Active Substance: CARVEDILOL
     Indication: Product used for unknown indication
     Dosage: 6.5 MILLIGRAM, 5 TABLETS OF 2.5MG
     Route: 065

REACTIONS (33)
  - Thrombosis [Recovered/Resolved]
  - Cardiac assistance device user [Not Recovered/Not Resolved]
  - Brain natriuretic peptide decreased [Unknown]
  - International normalised ratio increased [Unknown]
  - Mean cell volume increased [Unknown]
  - Red cell distribution width increased [Unknown]
  - Lymphocyte count decreased [Unknown]
  - Monocyte count increased [Unknown]
  - White blood cell count decreased [Unknown]
  - Activated partial thromboplastin time prolonged [Unknown]
  - Atrial enlargement [Unknown]
  - Platelet disorder [Unknown]
  - Left ventricular hypertrophy [Unknown]
  - Diastolic dysfunction [Unknown]
  - Left atrial dilatation [Unknown]
  - Heart valve calcification [Unknown]
  - Tricuspid valve incompetence [Unknown]
  - Platelet count decreased [Not Recovered/Not Resolved]
  - Mean cell haemoglobin concentration decreased [Unknown]
  - Haematocrit decreased [Unknown]
  - Haemoglobin decreased [Unknown]
  - Red blood cell count decreased [Unknown]
  - Leukopenia [Not Recovered/Not Resolved]
  - Platelet count decreased [Recovering/Resolving]
  - Gait disturbance [Not Recovered/Not Resolved]
  - Walking aid user [Not Recovered/Not Resolved]
  - Disease progression [Not Recovered/Not Resolved]
  - Orthosis user [Not Recovered/Not Resolved]
  - Off label use [Recovered/Resolved]
  - Muscular weakness [Not Recovered/Not Resolved]
  - Asthenia [Not Recovered/Not Resolved]
  - Weight decreased [Not Recovered/Not Resolved]
  - Varices oesophageal [Recovered/Resolved]

NARRATIVE: CASE EVENT DATE: 20150101
